FAERS Safety Report 4308771-X (Version None)
Quarter: 2004Q1

REPORT INFORMATION
  Report Type: 
  Country: None (occurrence: None)
  Receive Date: 20040227
  Receipt Date: 20040218
  Transmission Date: 20041129
  Serious: Yes (Hospitalization)
  Sender: FDA-Public Use
  Company Number: 2004AP00557

PATIENT
  Age: 67 Year
  Sex: Male
  Weight: 43 kg

DRUGS (10)
  1. TENORMIN [Suspect]
     Indication: HYPERTENSION
     Dosage: 50 MG DAILY PO
     Route: 048
     Dates: start: 20030218
  2. ALMARL [Suspect]
     Indication: HYPERTENSION
     Dosage: 20 MG DAILY PO
     Route: 048
     Dates: start: 20020606
  3. EPADEL [Suspect]
     Indication: ATHEROSCLEROSIS OBLITERANS
     Dosage: 600 MG TID PO
     Route: 048
     Dates: start: 20020513
  4. TICPILONE [Suspect]
     Indication: ATHEROSCLEROSIS OBLITERANS
     Dosage: 200 MG DAILY PO
     Route: 048
     Dates: start: 20021226
  5. ASPIRIN [Suspect]
     Indication: ATHEROSCLEROSIS OBLITERANS
     Dosage: 100 MG DAILY PO
     Route: 048
     Dates: start: 20021226
  6. PERDIPINA [Concomitant]
  7. GASTER [Concomitant]
  8. MEILAX [Concomitant]
  9. LAMISIL [Concomitant]
  10. NORVASC [Concomitant]

REACTIONS (3)
  - COLON CANCER [None]
  - CONSTIPATION [None]
  - DRUG INEFFECTIVE [None]
